FAERS Safety Report 9894652 (Version 2)
Quarter: 2014Q1

REPORT INFORMATION
  Report Type: Spontaneous
  Country: US (occurrence: US)
  Receive Date: 20140213
  Receipt Date: 20140328
  Transmission Date: 20141002
  Serious: Yes (Death, Life-Threatening, Hospitalization, Disabling, Other)
  Sender: FDA-Public Use
  Company Number: US-009507513-1402USA005836

PATIENT
  Sex: Male
  Weight: 86.17 kg

DRUGS (5)
  1. JANUVIA [Suspect]
     Indication: TYPE 2 DIABETES MELLITUS
     Dosage: 100 MG, QD
     Route: 048
     Dates: start: 20110625
  2. JANUVIA [Suspect]
     Dosage: 100 MG, UNK
     Route: 048
  3. JANUVIA [Suspect]
     Dosage: 100 MG, UNK
     Route: 048
  4. JANUVIA [Suspect]
     Dosage: 100 MG, UNK
     Route: 048
  5. ONGLYZA [Suspect]
     Indication: TYPE 2 DIABETES MELLITUS
     Dosage: 5 MG, QD
     Dates: start: 20120403, end: 20120503

REACTIONS (31)
  - Left atrial dilatation [Unknown]
  - Diastolic dysfunction [Unknown]
  - Left ventricular hypertrophy [Unknown]
  - Right atrial dilatation [Unknown]
  - Dilatation ventricular [Unknown]
  - Pulmonary arterial pressure increased [Unknown]
  - Leukocytosis [Unknown]
  - Atelectasis [Unknown]
  - Enterococcus test positive [Unknown]
  - Pulmonary hypertension [Unknown]
  - Pancreatic carcinoma metastatic [Fatal]
  - Biopsy liver [Unknown]
  - Metastases to liver [Unknown]
  - Lymphadenopathy [Unknown]
  - Cholelithiasis [Recovering/Resolving]
  - Biliary sphincterotomy [Unknown]
  - Sepsis syndrome [Unknown]
  - Septic shock [Unknown]
  - Cerebrovascular accident [Fatal]
  - Anaemia [Unknown]
  - Acute respiratory failure [Fatal]
  - Disseminated intravascular coagulation [Unknown]
  - Lacunar infarction [Unknown]
  - Atrial fibrillation [Unknown]
  - Cerebral artery occlusion [Unknown]
  - Deep vein thrombosis [Unknown]
  - Septic shock [Unknown]
  - Atrial fibrillation [Not Recovered/Not Resolved]
  - Hypertension [Unknown]
  - Thrombocytopenia [Unknown]
  - Mitral valve incompetence [Unknown]
